FAERS Safety Report 4866787-9 (Version None)
Quarter: 2005Q4

REPORT INFORMATION
  Report Type: 
  Country: None (occurrence: None)
  Receive Date: 20051222
  Receipt Date: 20051213
  Transmission Date: 20060501
  Serious: Yes (Hospitalization)
  Sender: FDA-Public Use
  Company Number: JP200512002385

PATIENT
  Age: 4 Year
  Sex: Male

DRUGS (5)
  1. CEFACLOR [Suspect]
     Indication: GASTROENTERITIS
     Dates: start: 20051128
  2. CEFDINIR [Concomitant]
  3. MUCODYNE (CARBOCIESTEINE) [Concomitant]
  4. PRIMPERAN TAB [Concomitant]
  5. PERIACTIN [Concomitant]

REACTIONS (2)
  - HAEMATURIA [None]
  - HAEMOLYSIS [None]
